FAERS Safety Report 16071278 (Version 2)
Quarter: 2019Q2

REPORT INFORMATION
  Report Type: Spontaneous
  Country: US (occurrence: US)
  Receive Date: 20190314
  Receipt Date: 20190516
  Transmission Date: 20190711
  Serious: No
  Sender: FDA-Public Use
  Company Number: US-PFIZER INC-2019105211

PATIENT
  Age: 79 Year
  Sex: Female

DRUGS (4)
  1. IBRANCE [Suspect]
     Active Substance: PALBOCICLIB
     Indication: BREAST CANCER
     Dosage: 75 MG, 1X/DAY
     Dates: start: 201901
  2. LEVOTHYROXINE. [Concomitant]
     Active Substance: LEVOTHYROXINE
     Dosage: UNK
     Dates: start: 2015
  3. OMEPRAZOLE. [Concomitant]
     Active Substance: OMEPRAZOLE
     Dosage: UNK
     Dates: start: 2018
  4. FULVESTRANT. [Suspect]
     Active Substance: FULVESTRANT
     Indication: SOLAR LENTIGO
     Dosage: UNK
     Dates: start: 201901

REACTIONS (3)
  - Pain [Not Recovered/Not Resolved]
  - Arthralgia [Not Recovered/Not Resolved]
  - Neoplasm progression [Not Recovered/Not Resolved]

NARRATIVE: CASE EVENT DATE: 201812
